FAERS Safety Report 4848124-9 (Version None)
Quarter: 2005Q4

REPORT INFORMATION
  Report Type: 
  Country: None (occurrence: None)
  Receive Date: 20051208
  Receipt Date: 20051202
  Transmission Date: 20060501
  Serious: Yes (Other)
  Sender: FDA-Public Use
  Company Number: US-AVENTIS-200520037US

PATIENT
  Sex: Female
  Weight: 64 kg

DRUGS (5)
  1. LOVENOX [Suspect]
     Indication: ANTICOAGULANT THERAPY
     Route: 058
     Dates: start: 20050801
  2. XELODA [Concomitant]
     Dosage: DOSE: NOT PROVIDED
  3. ZOMETA [Concomitant]
     Dosage: DOSE: NOT PROVIDED
  4. SYNTHROID [Concomitant]
     Dosage: DOSE: NOT PROVIDED
  5. WARFARIN SODIUM [Concomitant]
     Dosage: DOSE: NOT PROVIDED

REACTIONS (3)
  - INJECTION SITE BRUISING [None]
  - INJECTION SITE NODULE [None]
  - PLEURAL EFFUSION [None]
